FAERS Safety Report 13302366 (Version 2)
Quarter: 2017Q1

REPORT INFORMATION
  Report Type: Spontaneous
  Country: JP (occurrence: JP)
  Receive Date: 20170307
  Receipt Date: 20170321
  Transmission Date: 20170428
  Serious: Yes (Hospitalization)
  Sender: FDA-Public Use
  Company Number: PHJP2017JP007264

PATIENT
  Age: 79 Year
  Sex: Female

DRUGS (1)
  1. STALEVO [Suspect]
     Active Substance: CARBIDOPA\ENTACAPONE\LEVODOPA
     Indication: PARKINSON^S DISEASE
     Dosage: 1 DF, CARBIDOPA 10 MG/ ENTACAPONE 100 MG/ LEVODOPA 100 MG, UNK
     Route: 048

REACTIONS (6)
  - Pyrexia [Unknown]
  - Haematuria [Unknown]
  - Decreased activity [Unknown]
  - Dysphagia [Unknown]
  - Urinary tract infection [Unknown]
  - Decreased appetite [Unknown]
